FAERS Safety Report 18387027 (Version 1)
Quarter: 2020Q4

REPORT INFORMATION
  Report Type: Spontaneous
  Country: US (occurrence: US)
  Receive Date: 20201014
  Receipt Date: 20201014
  Transmission Date: 20210114
  Serious: Yes (Other)
  Sender: FDA-Public Use
  Company Number: None

PATIENT
  Age: 67 Year
  Sex: Male

DRUGS (12)
  1. LASIX [Concomitant]
     Active Substance: FUROSEMIDE
  2. TERAZOSIN [Concomitant]
     Active Substance: TERAZOSIN HYDROCHLORIDE
  3. WARFARIN [Concomitant]
     Active Substance: WARFARIN
  4. SILDENAFIL. [Concomitant]
     Active Substance: SILDENAFIL
  5. K-TAB [Concomitant]
     Active Substance: POTASSIUM CHLORIDE
  6. NARCAN [Concomitant]
     Active Substance: NALOXONE HYDROCHLORIDE
  7. VITAMIN B12 [Concomitant]
     Active Substance: CYANOCOBALAMIN
  8. FERROUS FUMARATE [Concomitant]
     Active Substance: FERROUS FUMARATE
  9. AMBRISENTAN 10MG TABLETS 30/BO: 10MG [Suspect]
     Active Substance: AMBRISENTAN
     Indication: PULMONARY ARTERIAL HYPERTENSION
     Route: 048
     Dates: start: 201301
  10. VELETRI [Concomitant]
     Active Substance: EPOPROSTENOL
  11. FOLIC ACID. [Concomitant]
     Active Substance: FOLIC ACID
  12. PRAVASTATIN. [Concomitant]
     Active Substance: PRAVASTATIN

REACTIONS (2)
  - Dyspnoea [None]
  - Treatment noncompliance [None]

NARRATIVE: CASE EVENT DATE: 20200913
